FAERS Safety Report 9205050 (Version 2)
Quarter: 2013Q3

REPORT INFORMATION
  Report Type: Spontaneous
  Country: US (occurrence: US)
  Receive Date: 20130402
  Receipt Date: 20130705
  Transmission Date: 20140515
  Serious: No
  Sender: FDA-Public Use
  Company Number: US-B.I. PHARMACEUTICALS,INC./RIDGEFIELD-2013-BI-07907BP

PATIENT
  Age: 57 Year
  Sex: Female
  Weight: 91 kg

DRUGS (1)
  1. TRADJENTA [Suspect]
     Indication: DIABETES MELLITUS
     Dosage: 5 MG
     Route: 048
     Dates: start: 20121119, end: 20121130

REACTIONS (2)
  - Decreased appetite [Recovered/Resolved]
  - Weight decreased [Recovered/Resolved]
